FAERS Safety Report 10378442 (Version 2)
Quarter: 2014Q3

REPORT INFORMATION
  Report Type: Spontaneous
  Country: IT (occurrence: IT)
  Receive Date: 20140812
  Receipt Date: 20140903
  Transmission Date: 20150326
  Serious: Yes (Hospitalization)
  Sender: FDA-Public Use
  Company Number: PHHY2014IT098113

PATIENT
  Age: 48 Year
  Sex: Male

DRUGS (1)
  1. ACETYLSALICYLIC ACID [Suspect]
     Active Substance: ASPIRIN
     Dosage: 500 MG, QD
     Route: 048
     Dates: start: 20140727, end: 20140729

REACTIONS (3)
  - Haematemesis [Recovering/Resolving]
  - Duodenal ulcer haemorrhage [Recovering/Resolving]
  - Melaena [Recovering/Resolving]

NARRATIVE: CASE EVENT DATE: 20140729
